FAERS Safety Report 12067021 (Version 3)
Quarter: 2016Q2

REPORT INFORMATION
  Report Type: Spontaneous
  Country: US (occurrence: US)
  Receive Date: 20160210
  Receipt Date: 20160608
  Transmission Date: 20160815
  Serious: No
  Sender: FDA-Public Use
  Company Number: US-JNJFOC-20160116639

PATIENT
  Age: 27 Year
  Sex: Male
  Weight: 104.33 kg

DRUGS (3)
  1. ARTANE [Concomitant]
     Active Substance: TRIHEXYPHENIDYL HYDROCHLORIDE
     Indication: SCHIZOPHRENIA
     Route: 065
     Dates: start: 20151223
  2. TOPAMAX [Concomitant]
     Active Substance: TOPIRAMATE
     Indication: SCHIZOPHRENIA
     Route: 065
     Dates: start: 20151223
  3. RISPERDAL CONSTA [Suspect]
     Active Substance: RISPERIDONE
     Indication: SCHIZOPHRENIA
     Route: 030
     Dates: start: 20151223

REACTIONS (2)
  - Device malfunction [Unknown]
  - Drug dose omission [Unknown]

NARRATIVE: CASE EVENT DATE: 20160120
